FAERS Safety Report 10425386 (Version 2)
Quarter: 2014Q3

REPORT INFORMATION
  Report Type: Spontaneous
  Country: IN (occurrence: IN)
  Receive Date: 20140902
  Receipt Date: 20140902
  Transmission Date: 20150326
  Serious: Yes (Hospitalization)
  Sender: FDA-Public Use
  Company Number: IN-BAUSCH-SYM-2014-23176

PATIENT
  Age: 42 Year
  Sex: Male

DRUGS (1)
  1. METRONIDAZOLE. [Suspect]
     Active Substance: METRONIDAZOLE
     Indication: DIARRHOEA

REACTIONS (1)
  - Toxic encephalopathy [Recovered/Resolved]
